FAERS Safety Report 7714577-1 (Version None)
Quarter: 2011Q3

REPORT INFORMATION
  Report Type: 
  Country: None (occurrence: None)
  Receive Date: 20110829
  Receipt Date: 20110818
  Transmission Date: 20111222
  Serious: No
  Sender: FDA-Public Use
  Company Number: US-PFIZER INC-2007035501

PATIENT
  Sex: Female

DRUGS (4)
  1. NEURONTIN [Suspect]
     Indication: BACK PAIN
     Dosage: UNK
  2. NEURONTIN [Suspect]
     Indication: ANXIETY
  3. NEURONTIN [Suspect]
     Indication: NERVE INJURY
  4. NEURONTIN [Suspect]
     Indication: DEPRESSION

REACTIONS (2)
  - BACK PAIN [None]
  - AMNESIA [None]
